FAERS Safety Report 4340068-4 (Version None)
Quarter: 2004Q2

REPORT INFORMATION
  Report Type: 
  Country: None (occurrence: None)
  Receive Date: 20040415
  Receipt Date: 20040415
  Transmission Date: 20050107
  Serious: Yes (Hospitalization)
  Sender: FDA-Public Use
  Company Number: None

PATIENT
  Age: 78 Year
  Sex: Male
  Weight: 95 kg

DRUGS (4)
  1. WARFARIN SODIUM [Suspect]
     Indication: ATRIAL FIBRILLATION
     Dosage: 4 MG DAILY ORAL
     Route: 048
     Dates: start: 20021204, end: 20031204
  2. ULTRACET [Suspect]
     Indication: PAIN
     Dosage: 37.5/325 Q6H PRN ORAL
     Route: 048
     Dates: start: 20031104, end: 20031204
  3. PROSCAR [Concomitant]
  4. SCKELAXIN [Concomitant]

REACTIONS (7)
  - DRUG INTERACTION [None]
  - EATING DISORDER [None]
  - HAEMATOMA [None]
  - HYPERCOAGULATION [None]
  - HYPOTENSION [None]
  - INTERNATIONAL NORMALISED RATIO INCREASED [None]
  - PAIN [None]
